FAERS Safety Report 20914787 (Version 1)
Quarter: 2022Q2

REPORT INFORMATION
  Report Type: Spontaneous
  Country: US (occurrence: US)
  Receive Date: 20220604
  Receipt Date: 20220604
  Transmission Date: 20220720
  Serious: No
  Sender: FDA-Public Use
  Company Number: US-SANOFI-01112771

PATIENT
  Age: 90 Year
  Sex: Male

DRUGS (3)
  1. MULTAQ [Suspect]
     Active Substance: DRONEDARONE
     Indication: Atrial fibrillation
     Dosage: 400 MG
  2. MULTAQ [Suspect]
     Active Substance: DRONEDARONE
     Dosage: 200 MG, BID
  3. AMIODARONE [Concomitant]
     Active Substance: AMIODARONE

REACTIONS (3)
  - Heart rate decreased [Recovered/Resolved]
  - Off label use [Unknown]
  - Wrong technique in product usage process [Unknown]
